FAERS Safety Report 9526847 (Version 1)
Quarter: 2013Q3

REPORT INFORMATION
  Report Type: Report from Study
  Country: IN (occurrence: IN)
  Receive Date: 20130916
  Receipt Date: 20130916
  Transmission Date: 20140515
  Serious: Yes (Other)
  Sender: FDA-Public Use
  Company Number: PHHY2013IN101420

PATIENT
  Age: 88 Year
  Sex: Male

DRUGS (4)
  1. EXELON PATCH [Suspect]
     Indication: PARKINSON^S DISEASE
     Dosage: 4.6 MG, DAILY
     Route: 062
  2. CREMAFFIN PLUS [Concomitant]
     Indication: CONSTIPATION
     Dosage: 3 SPOON DAILY
     Route: 048
  3. JANUVIA [Concomitant]
     Indication: DIABETES MELLITUS
     Dosage: 100 MG, UNK
  4. QUTIPIN [Concomitant]
     Indication: SLEEP DISORDER
     Dosage: 0.25 MG, DAILY
     Route: 048

REACTIONS (7)
  - Acute monocytic leukaemia [Not Recovered/Not Resolved]
  - Asthenia [Not Recovered/Not Resolved]
  - Decreased appetite [Not Recovered/Not Resolved]
  - Pyrexia [Not Recovered/Not Resolved]
  - Haemoglobin decreased [Unknown]
  - Platelet count decreased [Unknown]
  - Parkinson^s disease [Not Recovered/Not Resolved]
